FAERS Safety Report 7705053-0 (Version None)
Quarter: 2011Q3

REPORT INFORMATION
  Report Type: 
  Country: None (occurrence: None)
  Receive Date: 20110823
  Receipt Date: 20110804
  Transmission Date: 20111222
  Serious: Yes (Hospitalization)
  Sender: FDA-Public Use
  Company Number: PHHO2011DE12560

PATIENT
  Sex: Male

DRUGS (4)
  1. SANDIMMUNE [Suspect]
     Indication: HEART TRANSPLANT
     Dosage: 150 MG, BID
     Dates: start: 20110301
  2. EVEROLIMUS [Suspect]
     Indication: HEART TRANSPLANT
     Dosage: 0.75 MG, BID
     Route: 048
     Dates: start: 20110610
  3. RAMIPRIL [Concomitant]
     Indication: HYPERTENSION
     Dosage: 5 MG, BID
     Dates: start: 20110308
  4. METOPROLOL [Concomitant]
     Indication: HYPERTENSION
     Dosage: 47.5 MG, BID
     Dates: start: 20110311

REACTIONS (1)
  - HYPERTENSIVE CRISIS [None]
